FAERS Safety Report 25489594 (Version 1)
Quarter: 2025Q2

REPORT INFORMATION
  Report Type: Spontaneous
  Country: RO (occurrence: RO)
  Receive Date: 20250627
  Receipt Date: 20250627
  Transmission Date: 20250717
  Serious: Yes (Other)
  Sender: NOVARTIS
  Company Number: RO-002147023-NVSC2025RO099133

PATIENT
  Age: 36 Year
  Sex: Female

DRUGS (1)
  1. EVEROLIMUS [Suspect]
     Active Substance: EVEROLIMUS
     Indication: Liver transplant
     Route: 065

REACTIONS (8)
  - Hepatic cirrhosis [Unknown]
  - Varices oesophageal [Unknown]
  - Transplant rejection [Unknown]
  - Vanishing bile duct syndrome [Unknown]
  - Blood bilirubin increased [Unknown]
  - Hypoalbuminaemia [Unknown]
  - Liver disorder [Unknown]
  - Hepatic function abnormal [Unknown]
